FAERS Safety Report 13176989 (Version 1)
Quarter: 2017Q1

REPORT INFORMATION
  Report Type: Report from Study
  Country: US (occurrence: US)
  Receive Date: 20170201
  Receipt Date: 20170201
  Transmission Date: 20170428
  Serious: No
  Sender: FDA-Public Use
  Company Number: US-EXELIXIS-CABO-16006847

PATIENT
  Sex: Male

DRUGS (2)
  1. COMETRIQ [Suspect]
     Active Substance: CABOZANTINIB S-MALATE
     Indication: RENAL CANCER
     Dosage: 60 MG, QD
     Route: 048
     Dates: start: 20160205
  2. CLONIDINE. [Suspect]
     Active Substance: CLONIDINE

REACTIONS (4)
  - Pain in extremity [Unknown]
  - Burning sensation [Unknown]
  - Off label use [Unknown]
  - Hyperkeratosis [Unknown]
